FAERS Safety Report 21920501 (Version 1)
Quarter: 2023Q1

REPORT INFORMATION
  Report Type: Report from Study
  Country: IN (occurrence: IN)
  Receive Date: 20230127
  Receipt Date: 20230127
  Transmission Date: 20230418
  Serious: Yes (Death, Other)
  Sender: FDA-Public Use
  Company Number: IN-BAYER-2023A009848

PATIENT
  Age: 24 Year
  Sex: Female

DRUGS (3)
  1. CIPROFLOXACIN [Suspect]
     Active Substance: CIPROFLOXACIN
  2. CARBAMAZEPINE [Suspect]
     Active Substance: CARBAMAZEPINE
  3. METRONIDAZOLE [Concomitant]
     Active Substance: METRONIDAZOLE

REACTIONS (2)
  - Stevens-Johnson syndrome [Fatal]
  - Drug-induced liver injury [None]
